FAERS Safety Report 17874902 (Version 3)
Quarter: 2020Q3

REPORT INFORMATION
  Report Type: Spontaneous
  Country: US (occurrence: US)
  Receive Date: 20200609
  Receipt Date: 20200728
  Transmission Date: 20201103
  Serious: No
  Sender: FDA-Public Use
  Company Number: US-PFIZER INC-2020222934

PATIENT
  Age: 62 Year
  Sex: Female

DRUGS (1)
  1. XELJANZ XR [Suspect]
     Active Substance: TOFACITINIB CITRATE
     Indication: RHEUMATOID ARTHRITIS
     Dosage: 11 MG, DAILY
     Route: 048
     Dates: start: 20200529

REACTIONS (7)
  - Dyspnoea [Recovered/Resolved]
  - Cough [Unknown]
  - Night sweats [Unknown]
  - Sleep apnoea syndrome [Unknown]
  - Headache [Recovered/Resolved]
  - Muscle spasms [Unknown]
  - Product dose omission issue [Unknown]
